FAERS Safety Report 15251233 (Version 1)
Quarter: 2018Q3

REPORT INFORMATION
  Report Type: Spontaneous
  Country: IT (occurrence: IT)
  Receive Date: 20180807
  Receipt Date: 20180807
  Transmission Date: 20181010
  Serious: Yes (Hospitalization)
  Sender: FDA-Public Use
  Company Number: IT-B.I. PHARMACEUTICALS,INC./RIDGEFIELD-2018-BI-039120

PATIENT
  Sex: Male

DRUGS (4)
  1. CATAPRESAN [Suspect]
     Active Substance: CLONIDINE
     Dosage: DOSE: 3 TABLETS A DAY.
     Route: 065
  2. LASIX [Concomitant]
     Active Substance: FUROSEMIDE
     Indication: PRODUCT USED FOR UNKNOWN INDICATION
     Route: 065
  3. LACTULOSE. [Concomitant]
     Active Substance: LACTULOSE
     Indication: CONSTIPATION
     Route: 065
  4. CATAPRESAN [Suspect]
     Active Substance: CLONIDINE
     Indication: HYPERTENSION
     Dosage: DOSE: 1/4 DOSAGE FORMS
     Route: 065

REACTIONS (1)
  - Large intestinal stenosis [Not Recovered/Not Resolved]
